FAERS Safety Report 14817924 (Version 5)
Quarter: 2022Q1

REPORT INFORMATION
  Report Type: Spontaneous
  Country: US (occurrence: None)
  Receive Date: 20180427
  Receipt Date: 20220204
  Transmission Date: 20220423
  Serious: Yes (Death, Other)
  Sender: FDA-Public Use
  Company Number: 2018SE55693

PATIENT
  Age: 63 Year
  Sex: Male
  Weight: 90.7 kg

DRUGS (32)
  1. NEXIUM [Suspect]
     Active Substance: ESOMEPRAZOLE MAGNESIUM
     Dosage: FOR VARIOUS DATES AND YEARS PRIOR TO AND/OR INCLUDING THE DATE(S) DECEDENT^S INJURY OR INJURIES/D...
     Route: 048
  2. NEXIUM 24HR [Suspect]
     Active Substance: ESOMEPRAZOLE MAGNESIUM
     Dosage: FOR VARIOUS DATES AND YEARS PRIOR TO AND/OR INCLUDING THE DATE(S) DECEDENT^S INJURY OR INJURIES/D...
     Route: 048
  3. PRILOSEC [Suspect]
     Active Substance: OMEPRAZOLE MAGNESIUM
     Dosage: FOR VARIOUS DATES AND YEARS PRIOR TO AND/OR INCLUDING THE DATE(S) DECEDENT^S INJURY OR INJURIES/D...
     Route: 048
  4. PRILOSEC [Suspect]
     Active Substance: OMEPRAZOLE MAGNESIUM
     Dosage: OMEPRAZOLE GENERIC
     Route: 065
  5. PRILOSEC OTC [Suspect]
     Active Substance: OMEPRAZOLE MAGNESIUM
     Dosage: FOR VARIOUS DATES AND YEARS PRIOR TO AND/OR INCLUDING THE DATE(S) DECEDENT^S INJURY OR INJURIES/D...
     Route: 048
  6. DEXILANT [Suspect]
     Active Substance: DEXLANSOPRAZOLE
     Route: 065
  7. PREVACID [Suspect]
     Active Substance: LANSOPRAZOLE
     Route: 065
  8. PREVACID 24 HR [Suspect]
     Active Substance: LANSOPRAZOLE
     Route: 065
  9. PROTONIX [Suspect]
     Active Substance: PANTOPRAZOLE SODIUM
     Route: 065
  10. LEVOTHYROXINE [Concomitant]
     Active Substance: LEVOTHYROXINE
  11. TYLENOL [Concomitant]
     Active Substance: ACETAMINOPHEN
     Indication: Analgesic therapy
  12. PEPCID [Concomitant]
     Active Substance: FAMOTIDINE
  13. TUMS [Concomitant]
     Active Substance: CALCIUM CARBONATE
  14. METOPROLOL [Concomitant]
     Active Substance: METOPROLOL
  15. LOVASTATIN [Concomitant]
     Active Substance: LOVASTATIN
  16. CARVEDILOL [Concomitant]
     Active Substance: CARVEDILOL
  17. FUROSEMIDE [Concomitant]
     Active Substance: FUROSEMIDE
  18. GOLYTELY [Concomitant]
     Active Substance: POLYETHYLENE GLYCOL 3350\POTASSIUM CHLORIDE\SODIUM BICARBONATE\SODIUM CHLORIDE\SODIUM SULFATE
  19. ACETAMINOPHEN/COD [Concomitant]
  20. LEVAQUIN [Concomitant]
     Active Substance: LEVOFLOXACIN
  21. KLOR-CON [Concomitant]
     Active Substance: POTASSIUM CHLORIDE
  22. RENVELA [Concomitant]
     Active Substance: SEVELAMER CARBONATE
  23. MUCINEX [Concomitant]
     Active Substance: GUAIFENESIN
  24. TRAZODONE [Concomitant]
     Active Substance: TRAZODONE HYDROCHLORIDE
  25. FOSINOPRIL [Concomitant]
     Active Substance: FOSINOPRIL
  26. LEVOTHYROXINE [Concomitant]
     Active Substance: LEVOTHYROXINE
  27. LOSARTAN [Concomitant]
     Active Substance: LOSARTAN
  28. DIOVAN [Concomitant]
     Active Substance: VALSARTAN
  29. MIDODRINE [Concomitant]
     Active Substance: MIDODRINE
  30. AZITHROMYCIN [Concomitant]
     Active Substance: AZITHROMYCIN
  31. CEPHALEXIN [Concomitant]
     Active Substance: CEPHALEXIN
  32. METRONIDAZOLE [Concomitant]
     Active Substance: METRONIDAZOLE

REACTIONS (7)
  - Renal failure [Fatal]
  - Acute kidney injury [Unknown]
  - Chronic kidney disease [Not Recovered/Not Resolved]
  - End stage renal disease [Unknown]
  - Renal injury [Unknown]
  - Tubulointerstitial nephritis [Unknown]
  - Rebound acid hypersecretion [Unknown]

NARRATIVE: CASE EVENT DATE: 20110101
